FAERS Safety Report 10550438 (Version 2)
Quarter: 2014Q4

REPORT INFORMATION
  Report Type: Spontaneous
  Country: US (occurrence: US)
  Receive Date: 20141029
  Receipt Date: 20141029
  Transmission Date: 20150529
  Serious: No
  Sender: FDA-Public Use
  Company Number: US-TEVA-456546USA

PATIENT
  Sex: Male
  Weight: 69.92 kg

DRUGS (5)
  1. METOPROLOL TARTRATE. [Concomitant]
     Active Substance: METOPROLOL TARTRATE
     Indication: BLOOD PRESSURE ABNORMAL
  2. PROVIGIL [Suspect]
     Active Substance: MODAFINIL
     Indication: NERVOUS SYSTEM DISORDER
  3. CLOPIDOGREL BISULFATE. [Concomitant]
     Active Substance: CLOPIDOGREL BISULFATE
     Indication: STENT PLACEMENT
  4. PANTOPRAZOLE [Concomitant]
     Active Substance: PANTOPRAZOLE SODIUM
     Indication: GASTRIC PH DECREASED
  5. MODAFINIL. [Suspect]
     Active Substance: MODAFINIL
     Indication: NERVOUS SYSTEM DISORDER

REACTIONS (8)
  - Irritability [Recovered/Resolved]
  - Product use issue [Unknown]
  - Headache [Recovered/Resolved]
  - Feeling abnormal [Recovered/Resolved]
  - Lethargy [Recovered/Resolved]
  - Palpitations [Recovered/Resolved]
  - Confusional state [Recovered/Resolved]
  - Somnolence [Recovered/Resolved]
